FAERS Safety Report 6468752-7 (Version None)
Quarter: 2009Q4

REPORT INFORMATION
  Report Type: 
  Country: None (occurrence: None)
  Receive Date: 20091203
  Receipt Date: 20091126
  Transmission Date: 20100525
  Serious: Yes (Death)
  Sender: FDA-Public Use
  Company Number: JP-BAYER-200913628BYL

PATIENT
  Age: 65 Year
  Sex: Male

DRUGS (10)
  1. NEXAVAR [Suspect]
     Indication: HEPATIC NEOPLASM MALIGNANT
     Dosage: UNIT DOSE: 200 MG
     Route: 048
     Dates: start: 20090909, end: 20090914
  2. LIVACT [Concomitant]
     Dosage: TOTAL DAILY DOSE: 3 DF
     Route: 048
  3. PROHEPARUM [Concomitant]
     Dosage: TOTAL DAILY DOSE: 3 DF
     Route: 048
  4. GLYCYRON [Concomitant]
     Dosage: TOTAL DAILY DOSE: 3 DF
     Route: 048
  5. URSO 250 [Concomitant]
     Dosage: TOTAL DAILY DOSE: 6 DF
     Route: 048
  6. DEPAS [Concomitant]
     Dosage: TOTAL DAILY DOSE: 1 MG  UNIT DOSE: 0.5 MG
     Route: 048
  7. AMLODIN OD [Concomitant]
     Dosage: TOTAL DAILY DOSE: 1 DF
     Route: 048
  8. TAKEPRON [Concomitant]
     Dosage: TOTAL DAILY DOSE: 15 MG  UNIT DOSE: 15 MG
     Route: 048
  9. KOBALNON [Concomitant]
     Dosage: TOTAL DAILY DOSE: 3 DF
     Route: 048
  10. METHYCOBAL [Concomitant]
     Dosage: TOTAL DAILY DOSE: 3 DF
     Route: 048

REACTIONS (1)
  - RESPIRATORY FAILURE [None]
